FAERS Safety Report 4575464-3 (Version None)
Quarter: 2005Q1

REPORT INFORMATION
  Report Type: 
  Country: None (occurrence: None)
  Receive Date: 20050209
  Receipt Date: 20050128
  Transmission Date: 20050727
  Serious: Yes (Hospitalization, Other)
  Sender: FDA-Public Use
  Company Number: 200510204DE

PATIENT
  Age: 63 Year
  Sex: Male

DRUGS (6)
  1. AMARYL [Suspect]
     Indication: DIABETES MELLITUS NON-INSULIN-DEPENDENT
     Route: 048
     Dates: end: 20011010
  2. ROSIGLITAZONE MALEATE [Suspect]
     Indication: DIABETES MELLITUS NON-INSULIN-DEPENDENT
     Route: 048
     Dates: start: 20010418, end: 20011010
  3. LUDIOMIL [Concomitant]
     Dates: start: 20010202
  4. XANAX [Concomitant]
     Dates: start: 20001211
  5. CAPTOHEXAL [Concomitant]
     Dates: start: 19990728
  6. FEXOFENADINE HCL [Concomitant]
     Dates: start: 20010215

REACTIONS (5)
  - ABDOMINAL PAIN [None]
  - CHOLECYSTITIS [None]
  - CHOLELITHIASIS [None]
  - TRANSAMINASES INCREASED [None]
  - VOMITING [None]
